FAERS Safety Report 9990778 (Version 1)
Quarter: 2014Q1

REPORT INFORMATION
  Report Type: Spontaneous
  Country: US (occurrence: None)
  Receive Date: 20140123
  Receipt Date: 20140123
  Transmission Date: 20141002
  Serious: Yes (Hospitalization)
  Sender: FDA-Public Use
  Company Number: UTC-036120

PATIENT
  Age: 50 Year
  Sex: Female
  Weight: 58.63 kg

DRUGS (2)
  1. REMODULIN (10 MILLIGRAM/MILLILITERS, INJECTION FOR INFUSION) (TREPROSTINIL SODIUM) [Suspect]
     Indication: PULMONARY ARTERIAL HYPERTENSION
     Dosage: 128.16 UG/KG (0.089 UG/KG, 1 IN 1 MIN), SUBCUTANEOUS
     Dates: start: 20070206
  2. COUMADIN (WARFARIN SODIUM) [Concomitant]

REACTIONS (1)
  - Cellulitis [None]
